FAERS Safety Report 7826251-1 (Version None)
Quarter: 2011Q4

REPORT INFORMATION
  Report Type: 
  Country: None (occurrence: None)
  Receive Date: 20111020
  Receipt Date: 20111012
  Transmission Date: 20120403
  Serious: No
  Sender: FDA-Public Use
  Company Number: US-BIOGENIDEC-2010BI041701

PATIENT
  Age: 37 Year
  Sex: Female

DRUGS (1)
  1. TYSABRI [Suspect]
     Indication: MULTIPLE SCLEROSIS
     Route: 042
     Dates: start: 20100812

REACTIONS (9)
  - BAND SENSATION [None]
  - HYPOTENSION [None]
  - ABDOMINAL PAIN UPPER [None]
  - MENTAL IMPAIRMENT [None]
  - ARTHRALGIA [None]
  - PAIN IN EXTREMITY [None]
  - HEADACHE [None]
  - FATIGUE [None]
  - FLUSHING [None]
